FAERS Safety Report 10543216 (Version 1)
Quarter: 2014Q4

REPORT INFORMATION
  Report Type: Spontaneous
  Country: US (occurrence: None)
  Receive Date: 20141023
  Receipt Date: 20141023
  Transmission Date: 20150529
  Serious: Yes (Hospitalization)
  Sender: FDA-Public Use
  Company Number: T-2014-378

PATIENT
  Age: 25 Year
  Sex: Male

DRUGS (1)
  1. CYSTADANE [Suspect]
     Active Substance: BETAINE
     Indication: HOMOCYSTINURIA
     Dates: start: 199508

REACTIONS (2)
  - Food intolerance [None]
  - Gastroenteritis [None]

NARRATIVE: CASE EVENT DATE: 20141010
